FAERS Safety Report 17644008 (Version 1)
Quarter: 2020Q2

REPORT INFORMATION
  Report Type: Spontaneous
  Country: GB (occurrence: GB)
  Receive Date: 20200408
  Receipt Date: 20200408
  Transmission Date: 20200713
  Serious: Yes (Death)
  Sender: FDA-Public Use
  Company Number: GB-TEVA-2020-GB-1220520

PATIENT
  Sex: Male

DRUGS (4)
  1. PREDNISOLONE. [Suspect]
     Active Substance: PREDNISOLONE
     Route: 065
  2. VALGANCICLOVIR HYDROCHLORIDE. [Suspect]
     Active Substance: VALGANCICLOVIR HYDROCHLORIDE
     Route: 065
  3. ADOPORT [Suspect]
     Active Substance: TACROLIMUS
     Route: 065
  4. MYFENAX [Suspect]
     Active Substance: MYCOPHENOLATE MOFETIL
     Route: 065

REACTIONS (1)
  - Death [Fatal]
